FAERS Safety Report 12072562 (Version 1)
Quarter: 2016Q1

REPORT INFORMATION
  Report Type: Report from Study
  Country: US (occurrence: US)
  Receive Date: 20160212
  Receipt Date: 20160212
  Transmission Date: 20160526
  Serious: Yes (Hospitalization)
  Sender: FDA-Public Use
  Company Number: US-WATSON-2016-02503

PATIENT
  Age: 53 Year
  Sex: Male
  Weight: 76 kg

DRUGS (15)
  1. NORCO [Suspect]
     Active Substance: ACETAMINOPHEN\HYDROCODONE BITARTRATE
     Indication: PAIN
     Dosage: 1-2 DOSE FORMS, EVERY 4 HOURS PRN
     Route: 048
     Dates: start: 20151105, end: 20151106
  2. PRILOSEC [Concomitant]
     Active Substance: OMEPRAZOLE MAGNESIUM
     Indication: PEPTIC ULCER
     Dosage: 20 MG, DAILY
     Route: 048
     Dates: start: 1995
  3. FLOMAX [Concomitant]
     Active Substance: TAMSULOSIN HYDROCHLORIDE
     Indication: NEPHROLITHIASIS
     Dosage: 0.4 MG, DAILY
     Route: 048
     Dates: start: 20151105, end: 20151109
  4. PERCOCET [Suspect]
     Active Substance: ACETAMINOPHEN\OXYCODONE HYDROCHLORIDE
     Indication: PAIN
     Dosage: 1-2 DOSE FORMS, EVERY 6 HOURS PRN
     Route: 048
     Dates: start: 20151105, end: 20151108
  5. ZETIA [Concomitant]
     Active Substance: EZETIMIBE
     Indication: BLOOD CHOLESTEROL INCREASED
     Dosage: 10 MG, DAILY
     Route: 048
     Dates: start: 20150620
  6. TRICOR                             /00499301/ [Concomitant]
     Indication: BLOOD TRIGLYCERIDES INCREASED
     Dosage: 135 MG, DAILY
     Route: 048
     Dates: start: 2011
  7. DILAUDID [Suspect]
     Active Substance: HYDROMORPHONE HYDROCHLORIDE
     Indication: PAIN
     Dosage: 1 MG, ONE TIME DOSE
     Route: 042
     Dates: start: 20151105, end: 20151105
  8. DYAZIDE [Concomitant]
     Active Substance: HYDROCHLOROTHIAZIDE\TRIAMTERENE
     Indication: HYPERTENSION
     Dosage: 50 MG/ 75 MG, ONCE DAILY
     Route: 048
     Dates: start: 2005
  9. CONTRAST MEDIA [Concomitant]
     Active Substance: UNSPECIFIED INGREDIENT
     Indication: IMAGING PROCEDURE
     Dosage: UNK, SINGLE
     Route: 042
     Dates: start: 20151105
  10. FOSAMAX [Concomitant]
     Active Substance: ALENDRONATE SODIUM
     Indication: BENIGN PROSTATIC HYPERPLASIA
     Dosage: 35 MG, 1/WEEK
     Route: 048
     Dates: start: 2012
  11. LIPITOR [Concomitant]
     Active Substance: ATORVASTATIN CALCIUM
     Indication: BLOOD CHOLESTEROL INCREASED
     Dosage: 40 MG, DAILY
     Route: 048
     Dates: start: 20141022
  12. GLUCOPHAGE [Concomitant]
     Active Substance: METFORMIN HYDROCHLORIDE
     Indication: TYPE 2 DIABETES MELLITUS
     Dosage: 1000 MG, BID
     Route: 048
     Dates: start: 2013
  13. CORGARD [Concomitant]
     Active Substance: NADOLOL
     Indication: HYPERTENSION
     Dosage: 40 MG, BID
     Route: 048
     Dates: start: 2005
  14. SODIUM CHLORIDE. [Concomitant]
     Active Substance: SODIUM CHLORIDE
     Indication: PRODUCT USED FOR UNKNOWN INDICATION
     Dosage: UNK, SINGLE
     Route: 042
     Dates: start: 20151105
  15. ZOFRAN [Concomitant]
     Active Substance: ONDANSETRON HYDROCHLORIDE
     Indication: NAUSEA
     Dosage: 4 MG, SINGLE
     Route: 042
     Dates: start: 20151105, end: 20151105

REACTIONS (1)
  - Small intestinal obstruction [Recovered/Resolved]

NARRATIVE: CASE EVENT DATE: 20151108
